FAERS Safety Report 10693590 (Version 3)
Quarter: 2015Q2

REPORT INFORMATION
  Report Type: Report from Study
  Country: US (occurrence: US)
  Receive Date: 20150106
  Receipt Date: 20150427
  Transmission Date: 20150821
  Serious: Yes (Hospitalization)
  Sender: FDA-Public Use
  Company Number: US-AMGEN-USASL2014101885

PATIENT
  Age: 44 Year
  Sex: Female
  Weight: 153.74 kg

DRUGS (3)
  1. ACYCLOVIR                          /00587301/ [Concomitant]
     Active Substance: ACYCLOVIR
     Indication: ANTIFUNGAL TREATMENT
     Dosage: UNK
     Route: 065
  2. KYPROLIS [Suspect]
     Active Substance: CARFILZOMIB
     Indication: PLASMA CELL MYELOMA
     Dosage: UNK UNK, 2 TIMES/WK
     Route: 042
     Dates: start: 20141216, end: 20150318
  3. DEXAMETHASONE. [Concomitant]
     Active Substance: DEXAMETHASONE
     Indication: PREMEDICATION
     Dosage: 20 MG, PER CHEMO REGIM
     Route: 048

REACTIONS (2)
  - Disease progression [Unknown]
  - Administration site cellulitis [Recovered/Resolved]

NARRATIVE: CASE EVENT DATE: 20141217
